FAERS Safety Report 20598232 (Version 1)
Quarter: 2022Q1

REPORT INFORMATION
  Report Type: Spontaneous
  Country: RU (occurrence: RU)
  Receive Date: 20220315
  Receipt Date: 20220315
  Transmission Date: 20220423
  Serious: Yes (Other)
  Sender: FDA-Public Use
  Company Number: RU-ABBVIE-22K-251-4315913-00

PATIENT
  Age: 15 Year
  Sex: Male
  Weight: 76 kg

DRUGS (1)
  1. VALPROIC ACID [Suspect]
     Active Substance: VALPROIC ACID
     Indication: Epilepsy
     Route: 048
     Dates: start: 20180701, end: 20181201

REACTIONS (1)
  - Weight increased [Recovering/Resolving]
